FAERS Safety Report 17848690 (Version 1)
Quarter: 2020Q2

REPORT INFORMATION
  Report Type: Report from Study
  Country: GB (occurrence: GB)
  Receive Date: 20200602
  Receipt Date: 20200602
  Transmission Date: 20200714
  Serious: Yes (Other)
  Sender: FDA-Public Use
  Company Number: NVSC2020GB088486

PATIENT
  Sex: Male

DRUGS (1)
  1. HYRIMOZ [Suspect]
     Active Substance: ADALIMUMAB-ADAZ
     Indication: CROHN^S DISEASE
     Dosage: 1 DF, QW (40/0.8 MG/ML)
     Route: 058
     Dates: start: 20200117

REACTIONS (6)
  - Sleep disorder [Unknown]
  - Crohn^s disease [Recovering/Resolving]
  - Stress [Unknown]
  - Therapy non-responder [Not Recovered/Not Resolved]
  - Grief reaction [Unknown]
  - Functional gastrointestinal disorder [Unknown]
